FAERS Safety Report 10073305 (Version 2)
Quarter: 2014Q2

REPORT INFORMATION
  Report Type: Spontaneous
  Country: AU (occurrence: AU)
  Receive Date: 20140411
  Receipt Date: 20140520
  Transmission Date: 20141212
  Serious: Yes (Other)
  Sender: FDA-Public Use
  Company Number: AU-JNJFOC-20140405159

PATIENT
  Age: 15 Year
  Sex: Male
  Weight: 65 kg

DRUGS (4)
  1. REMICADE [Suspect]
     Indication: ANAL FISTULA
     Dosage: INDUCTION DOSE
     Route: 042
     Dates: start: 20131004, end: 20140117
  2. REMICADE [Suspect]
     Indication: CROHN^S DISEASE
     Dosage: INDUCTION DOSE
     Route: 042
     Dates: start: 20131004, end: 20140117
  3. AZATHIOPRINE [Suspect]
     Indication: ANAL FISTULA
     Route: 048
     Dates: start: 20131018
  4. AZATHIOPRINE [Suspect]
     Indication: CROHN^S DISEASE
     Route: 048
     Dates: start: 20131018

REACTIONS (1)
  - Bone marrow failure [Recovering/Resolving]
